FAERS Safety Report 13759760 (Version 1)
Quarter: 2017Q3

REPORT INFORMATION
  Report Type: Spontaneous
  Country: US (occurrence: US)
  Receive Date: 20170717
  Receipt Date: 20170717
  Transmission Date: 20171127
  Serious: Yes (Other)
  Sender: FDA-Public Use
  Company Number: PHEH2017US021385

PATIENT
  Age: 33 Year
  Sex: Female

DRUGS (1)
  1. GILENYA [Suspect]
     Active Substance: FINGOLIMOD HYDROCHLORIDE
     Indication: MULTIPLE SCLEROSIS
     Dosage: 0.5 MG, QD
     Route: 048
     Dates: start: 2011, end: 20160926

REACTIONS (6)
  - Vision blurred [Unknown]
  - CD4 lymphocytes decreased [Unknown]
  - Tumefactive multiple sclerosis [Unknown]
  - Fatigue [Unknown]
  - Lymphocyte count decreased [Unknown]
  - CD8 lymphocytes decreased [Unknown]

NARRATIVE: CASE EVENT DATE: 20160722
